FAERS Safety Report 4269247-1 (Version None)
Quarter: 2004Q1

REPORT INFORMATION
  Report Type: 
  Country: None (occurrence: None)
  Receive Date: 20040112
  Receipt Date: 20040112
  Transmission Date: 20041129
  Serious: Yes (Life-Threatening)
  Sender: FDA-Public Use
  Company Number: None

PATIENT
  Sex: Female
  Weight: 83.9154 kg

DRUGS (2)
  1. VANCOMYCIN [Suspect]
     Indication: STREPTOCOCCAL SEPSIS
     Dosage: ABBOTT 1500 MG QD /BAXTER 1 G Q12H/ ABBOTT 750 Q12
     Dates: start: 20031109, end: 20031124
  2. VANCOMYCIN [Suspect]
     Dosage: ABBOTT 1500MG QD/BAXTER 1G Q12/ABBOTT 750MG Q 12

REACTIONS (1)
  - NEUTROPENIA [None]
